FAERS Safety Report 23859022 (Version 2)
Quarter: 2024Q2

REPORT INFORMATION
  Report Type: Spontaneous
  Country: CA (occurrence: CA)
  Receive Date: 20240515
  Receipt Date: 20240618
  Transmission Date: 20240716
  Serious: Yes (Hospitalization, Other)
  Sender: FDA-Public Use
  Company Number: CA-ORGANON-O2405CAN000907

PATIENT
  Age: 26 Year
  Sex: Female
  Weight: 56.69 kg

DRUGS (4)
  1. NEXPLANON [Suspect]
     Active Substance: ETONOGESTREL
     Indication: Contraception
     Dosage: 68 MILLIGRAMS (MG), LEFT UPPER ARM, 1 IMPLANT
     Route: 058
     Dates: start: 20230731, end: 20231120
  2. RISPERIDONE [Concomitant]
     Active Substance: RISPERIDONE
     Indication: Psychotic disorder
     Dosage: VERIABLE (0.5-4 MILLIGRAM (MG))
     Route: 048
     Dates: start: 202405
  3. PALIPERIDONE [Concomitant]
     Active Substance: PALIPERIDONE
     Indication: Psychotic disorder
     Dosage: VERIABLE
     Route: 030
     Dates: start: 202312, end: 202405
  4. ZOPICLONE [Concomitant]
     Active Substance: ZOPICLONE
     Indication: Insomnia
     Dosage: 5 MILLIGRAM, QH
     Route: 048
     Dates: start: 202311, end: 202312

REACTIONS (6)
  - Delusional disorder, persecutory type [Not Recovered/Not Resolved]
  - Self-destructive behaviour [Recovered/Resolved]
  - Aggression [Recovered/Resolved]
  - Anxiety [Recovering/Resolving]
  - Paranoia [Recovered/Resolved]
  - Fear [Unknown]

NARRATIVE: CASE EVENT DATE: 20230901
